FAERS Safety Report 6107405-1 (Version None)
Quarter: 2009Q1

REPORT INFORMATION
  Report Type: 
  Country: None (occurrence: None)
  Receive Date: 20090309
  Receipt Date: 20090227
  Transmission Date: 20090719
  Serious: No
  Sender: FDA-Public Use
  Company Number: US-ELI_LILLY_AND_COMPANY-US200812003755

PATIENT
  Sex: Female

DRUGS (11)
  1. CYMBALTA [Suspect]
     Indication: PANIC ATTACK
     Dosage: 30 MG, UNK
     Dates: start: 20080714, end: 20080921
  2. CYMBALTA [Suspect]
     Dosage: 60 MG, UNK
     Dates: start: 20080922
  3. CYMBALTA [Suspect]
     Dosage: 90 MG, UNK
     Dates: start: 20081208
  4. ABILIFY [Concomitant]
     Dosage: 5 MG, EACH MORNING
  5. BUSPAR [Concomitant]
     Dosage: 10 MG, 2/D
  6. ATIVAN [Concomitant]
     Dosage: 1 MG, 3/D
  7. AMBIEN [Concomitant]
     Indication: INSOMNIA
     Dosage: UNK, AS NEEDED
  8. LORA TAB [Concomitant]
     Indication: ROTATOR CUFF SYNDROME
     Dosage: 7.5 MG, UNK
  9. NAPRELAN [Concomitant]
     Indication: ROTATOR CUFF SYNDROME
     Dosage: 375 MG, UNK
  10. RITALIN [Concomitant]
     Dosage: 10 MG, 3/D
  11. LUNESTA [Concomitant]
     Dosage: 3 MG, EACH EVENING

REACTIONS (6)
  - ABDOMINAL PAIN [None]
  - HEADACHE [None]
  - METRORRHAGIA [None]
  - NAUSEA [None]
  - URINE COLOUR ABNORMAL [None]
  - URINE ODOUR ABNORMAL [None]
